FAERS Safety Report 9555238 (Version 1)
Quarter: 2013Q3

REPORT INFORMATION
  Report Type: Spontaneous
  Country: US (occurrence: None)
  Receive Date: 20130917
  Receipt Date: 20130917
  Transmission Date: 20140515
  Serious: Yes (Hospitalization)
  Sender: FDA-Public Use
  Company Number: 088233

PATIENT
  Age: 81 Year
  Sex: Male
  Weight: 88.9 kg

DRUGS (9)
  1. ROTIGOTINE [Suspect]
     Indication: RESTLESS LEGS SYNDROME
     Dates: start: 2013, end: 2013
  2. ROTIGOTINE [Suspect]
     Indication: PARKINSON^S DISEASE
     Dates: start: 2013, end: 2013
  3. SINEMET [Concomitant]
  4. PROPANOLOL /00030001/ [Concomitant]
  5. PRIMIDONE [Concomitant]
  6. NEXIUM [Concomitant]
  7. TAMSULOSIN [Concomitant]
  8. NITROSTAT [Concomitant]
  9. KLONOPIN [Concomitant]

REACTIONS (4)
  - Dyskinesia [None]
  - Skin irritation [None]
  - Cyanosis [None]
  - Chromaturia [None]
